FAERS Safety Report 21626700 (Version 2)
Quarter: 2022Q4

REPORT INFORMATION
  Report Type: Spontaneous
  Country: US (occurrence: US)
  Receive Date: 20221122
  Receipt Date: 20221123
  Transmission Date: 20230113
  Serious: Yes (Other)
  Sender: FDA-Public Use
  Company Number: US-NOVOPROD-958778

PATIENT
  Age: 45 Year
  Sex: Female

DRUGS (2)
  1. INSULIN ASPART PROTAMINE AND INSULIN ASPART [Suspect]
     Active Substance: INSULIN ASPART
     Indication: Type 1 diabetes mellitus
     Dosage: 2.5 IU/HR,  1 FACTOR MEAL BOLUS IU/ 10G/CARB, 5 IU AM, 7 IU LUNCH
     Route: 058
  2. INSULIN ASPART [Suspect]
     Active Substance: INSULIN ASPART
     Indication: Type 1 diabetes mellitus
     Dosage: 4 UNITS THIS AM 30 UNITS AT NIGHT,  30 IN THE MORNING
     Route: 058

REACTIONS (4)
  - Hypoglycaemic unconsciousness [Recovered/Resolved]
  - Product dispensing error [Recovered/Resolved]
  - Wrong technique in product usage process [Unknown]
  - Blood glucose decreased [Recovered/Resolved]

NARRATIVE: CASE EVENT DATE: 20220801
